FAERS Safety Report 14334598 (Version 2)
Quarter: 2018Q1

REPORT INFORMATION
  Report Type: Report from Study
  Country: US (occurrence: US)
  Receive Date: 20171228
  Receipt Date: 20180206
  Transmission Date: 20180509
  Serious: Yes (Death, Hospitalization)
  Sender: FDA-Public Use
  Company Number: US-BAUSCH-BL-2017-035975

PATIENT
  Age: 76 Year
  Sex: Female
  Weight: 68.1 kg

DRUGS (1)
  1. XIFAXAN [Suspect]
     Active Substance: RIFAXIMIN
     Indication: CROHN^S DISEASE
     Dosage: POSSIBLY IN OCT/2017
     Route: 048
     Dates: start: 2017

REACTIONS (6)
  - Death [Fatal]
  - Drug dose omission [Unknown]
  - Off label use [Not Recovered/Not Resolved]
  - Confusional state [Unknown]
  - Asthenia [Unknown]
  - Stoma site reaction [Unknown]

NARRATIVE: CASE EVENT DATE: 2017
